FAERS Safety Report 7592002-1 (Version None)
Quarter: 2011Q2

REPORT INFORMATION
  Report Type: 
  Country: None (occurrence: None)
  Receive Date: 20110603
  Receipt Date: 20100925
  Transmission Date: 20111010
  Serious: Yes (Hospitalization, Other)
  Sender: FDA-Public Use
  Company Number: US-SEPTODONT-201000193

PATIENT
  Sex: Female
  Weight: 36 kg

DRUGS (19)
  1. AREDIA (SODIUM PAMIDRONATE) [Concomitant]
  2. LOPRESSOR [Concomitant]
  3. PROPOXYPHENE NAPSYLATE/ACETAMINOPHEN (PROPOXYPHENE NAPSYLATE, ACETAMIN [Concomitant]
  4. SEPTOCAINE [Suspect]
     Indication: LOCAL ANAESTHESIA
     Dosage: DENTAL
     Route: 004
     Dates: start: 20040517
  5. EPOGEN [Concomitant]
  6. ADVAIR DISKUS (FLUTICASONE PROPIONATE) [Concomitant]
  7. ULTRACET [Concomitant]
  8. LOTREL [Concomitant]
  9. NORVASC [Concomitant]
  10. ANUSOL (ZINC OXIDE) [Concomitant]
  11. PREDNISONE (TRADE NAME NOT SPECIFIED) (PREDNISONE) [Concomitant]
  12. ARESTIN (MINOCYCLINE HYDROCHLORIDE) [Concomitant]
  13. ZOLOFT [Concomitant]
  14. QUESTRAN [Concomitant]
  15. MIACALCIN [Concomitant]
  16. PROTONIX [Concomitant]
  17. SANDOSTATIN LAR [Concomitant]
  18. HYDREA [Concomitant]
  19. TEVETEN [Concomitant]

REACTIONS (1)
  - OSTEONECROSIS OF JAW [None]
